FAERS Safety Report 8622782-5 (Version None)
Quarter: 2012Q3

REPORT INFORMATION
  Report Type: 
  Country: None (occurrence: None)
  Receive Date: 20120813
  Receipt Date: 20120803
  Transmission Date: 20120928
  Serious: Yes (Hospitalization)
  Sender: FDA-Public Use
  Company Number: 2012032790

PATIENT
  Sex: Female

DRUGS (1)
  1. HIZENTRA [Suspect]
     Dosage: (SUBCUTANEOUS)
     Route: 058

REACTIONS (3)
  - FALL [None]
  - PNEUMONIA [None]
  - LIMB INJURY [None]
